FAERS Safety Report 16783073 (Version 2)
Quarter: 2025Q3

REPORT INFORMATION
  Report Type: Spontaneous
  Country: EU (occurrence: EU)
  Receive Date: 20190906
  Receipt Date: 20250709
  Transmission Date: 20251021
  Serious: Yes (Other)
  Sender: AUROBINDO
  Company Number: EU-AUROBINDO-AUR-APL-2019-058247

PATIENT
  Age: 31 Day
  Sex: Female

DRUGS (4)
  1. AMOXICILLIN\CLAVULANIC ACID [Suspect]
     Active Substance: AMOXICILLIN\CLAVULANIC ACID
     Indication: Escherichia bacteraemia
  2. AMIKACIN SULFATE [Suspect]
     Active Substance: AMIKACIN SULFATE
     Indication: Escherichia bacteraemia
     Route: 065
  3. NEOMYCIN [Suspect]
     Active Substance: NEOMYCIN
     Indication: Prophylaxis
     Route: 065
  4. AMPHOTERICIN B [Concomitant]
     Active Substance: AMPHOTERICIN B
     Indication: Candida infection
     Route: 065

REACTIONS (13)
  - Hypophagia [Unknown]
  - Systemic candida [Unknown]
  - Malaise [Unknown]
  - Hypoproteinaemia [Unknown]
  - Escherichia sepsis [Unknown]
  - Escherichia bacteraemia [Unknown]
  - Acinetobacter test positive [Unknown]
  - Pyrexia [Unknown]
  - Skin lesion [Unknown]
  - Vomiting [Unknown]
  - Splenic lesion [Unknown]
  - Hyponatraemia [Unknown]
  - Candida infection [Unknown]
